FAERS Safety Report 6052385-0 (Version None)
Quarter: 2009Q1

REPORT INFORMATION
  Report Type: 
  Country: None (occurrence: None)
  Receive Date: 20090121
  Receipt Date: 20090112
  Transmission Date: 20090719
  Serious: Yes (Death)
  Sender: FDA-Public Use
  Company Number: 2009SS000001

PATIENT
  Age: 53 Year
  Sex: Male

DRUGS (1)
  1. MYOBLOC [Suspect]
     Indication: DYSTONIA
     Dosage: 12000 U; ; IM
     Route: 030
     Dates: start: 20080903, end: 20080903

REACTIONS (1)
  - DEATH [None]
